FAERS Safety Report 21590944 (Version 1)
Quarter: 2022Q4

REPORT INFORMATION
  Report Type: Spontaneous
  Country: CN (occurrence: CN)
  Receive Date: 20221114
  Receipt Date: 20221114
  Transmission Date: 20230113
  Serious: Yes (Hospitalization)
  Sender: FDA-Public Use
  Company Number: CN-SA-SAC20221108000723

PATIENT
  Age: 81 Year
  Sex: Male

DRUGS (4)
  1. INSULIN GLARGINE [Suspect]
     Active Substance: INSULIN GLARGINE
     Indication: Diabetes mellitus
     Dosage: 6 U, TID
     Route: 058
     Dates: start: 20220906, end: 20220911
  2. ACARBOSE [Concomitant]
     Active Substance: ACARBOSE
  3. ASPIRIN [Concomitant]
     Active Substance: ASPIRIN
     Indication: Pain
  4. ATORVASTATIN CALCIUM [Concomitant]
     Active Substance: ATORVASTATIN CALCIUM
     Dosage: 10.000000 MG 1X
     Route: 048
     Dates: start: 20180307, end: 20220915

REACTIONS (1)
  - Somnolence [Recovered/Resolved]

NARRATIVE: CASE EVENT DATE: 20220906
